FAERS Safety Report 9254628 (Version 2)
Quarter: 2013Q2

REPORT INFORMATION
  Report Type: Spontaneous
  Country: US (occurrence: US)
  Receive Date: 20130425
  Receipt Date: 20130620
  Transmission Date: 20140414
  Serious: No
  Sender: FDA-Public Use
  Company Number: US-PFIZER INC-2013127299

PATIENT
  Age: 59 Year
  Sex: Male

DRUGS (3)
  1. DAYPRO [Suspect]
     Dosage: UNK
  2. INDOCIN [Suspect]
     Dosage: UNK
  3. NAPROSYN [Suspect]
     Dosage: UNK

REACTIONS (1)
  - No adverse event [Unknown]
